FAERS Safety Report 21974014 (Version 3)
Quarter: 2023Q1

REPORT INFORMATION
  Report Type: Report from Study
  Country: US (occurrence: US)
  Receive Date: 20230209
  Receipt Date: 20230309
  Transmission Date: 20230418
  Serious: No
  Sender: FDA-Public Use
  Company Number: US-002147023-NVSC2023US023905

PATIENT
  Age: 68 Year
  Sex: Female

DRUGS (2)
  1. ENTRESTO [Suspect]
     Active Substance: SACUBITRIL\VALSARTAN
     Indication: Cardiac failure
     Dosage: 1 DOSAGE FORM, BID
     Route: 048
     Dates: start: 202205
  2. ENTRESTO [Suspect]
     Active Substance: SACUBITRIL\VALSARTAN
     Dosage: UNK (MAXIMUM DOSE)
     Route: 065

REACTIONS (8)
  - Feeling abnormal [Recovered/Resolved]
  - Amnesia [Not Recovered/Not Resolved]
  - Blood pressure increased [Unknown]
  - Heart rate decreased [Unknown]
  - Limb discomfort [Recovered/Resolved]
  - Frustration tolerance decreased [Unknown]
  - Urinary tract infection [Recovered/Resolved]
  - Fatigue [Recovered/Resolved]

NARRATIVE: CASE EVENT DATE: 20220501
